FAERS Safety Report 7159225-7 (Version None)
Quarter: 2010Q4

REPORT INFORMATION
  Report Type: 
  Country: None (occurrence: None)
  Receive Date: 20101214
  Receipt Date: 20100811
  Transmission Date: 20110411
  Serious: No
  Sender: FDA-Public Use
  Company Number: US-ASTRAZENECA-2010SE37645

PATIENT
  Sex: Male

DRUGS (1)
  1. CRESTOR [Suspect]
     Route: 048
     Dates: start: 20100701

REACTIONS (4)
  - DRUG DOSE OMISSION [None]
  - LETHARGY [None]
  - MUSCULAR WEAKNESS [None]
  - SOMNOLENCE [None]
